FAERS Safety Report 13992035 (Version 1)
Quarter: 2017Q3

REPORT INFORMATION
  Report Type: Spontaneous
  Country: US (occurrence: US)
  Receive Date: 20170920
  Receipt Date: 20170920
  Transmission Date: 20171128
  Serious: No
  Sender: FDA-Public Use
  Company Number: US-JNJFOC-20170820846

PATIENT
  Age: 38 Year
  Sex: Female
  Weight: 51.26 kg

DRUGS (1)
  1. STELARA [Suspect]
     Active Substance: USTEKINUMAB
     Indication: CROHN^S DISEASE
     Dosage: USTEKINUMAB 90 MG SUBCUTANEOUSLY INSTEAD OF 260 MG INFUSION (MEDICATION ERROR)
     Route: 058
     Dates: start: 20170822

REACTIONS (3)
  - Incorrect route of drug administration [Unknown]
  - Incorrect dose administered [Unknown]
  - Off label use [Unknown]

NARRATIVE: CASE EVENT DATE: 20170822
